FAERS Safety Report 17906620 (Version 1)
Quarter: 2020Q2

REPORT INFORMATION
  Report Type: Spontaneous
  Country: US (occurrence: US)
  Receive Date: 20200616
  Receipt Date: 20200616
  Transmission Date: 20200714
  Serious: Yes (Other)
  Sender: FDA-Public Use
  Company Number: US-ROCHE-2567135

PATIENT
  Sex: Female
  Weight: 53.57 kg

DRUGS (1)
  1. TOCILIZUMAB. [Suspect]
     Active Substance: TOCILIZUMAB
     Indication: RHEUMATOID ARTHRITIS
     Route: 058
     Dates: start: 20160910, end: 20200221

REACTIONS (4)
  - Nasopharyngitis [Unknown]
  - White blood cell count decreased [Unknown]
  - Cellulitis [Unknown]
  - Body height decreased [Unknown]
